FAERS Safety Report 22270354 (Version 5)
Quarter: 2024Q2

REPORT INFORMATION
  Report Type: Spontaneous
  Country: US (occurrence: US)
  Receive Date: 20230501
  Receipt Date: 20240521
  Transmission Date: 20240716
  Serious: No
  Sender: FDA-Public Use
  Company Number: US-PFIZER INC-PV202300075656

PATIENT
  Age: 34 Year
  Sex: Female

DRUGS (11)
  1. IBRANCE [Suspect]
     Active Substance: PALBOCICLIB
     Indication: Breast cancer female
     Dosage: 125 MG, CYCLIC (1 TAB ONCE DAILY FOR 21 CONSECUTIVE DAYS THEN 7 DAYS REST, REPEAT EVERY 28 DAYS)
     Route: 048
     Dates: start: 20230427
  2. ASCORBIC ACID [Concomitant]
     Active Substance: ASCORBIC ACID
     Dosage: UNK
  3. FLUOCINONIDE [Concomitant]
     Active Substance: FLUOCINONIDE
     Dosage: UNK
  4. LETROZOLE [Concomitant]
     Active Substance: LETROZOLE
     Dosage: UNK
  5. LORAZEPAM [Concomitant]
     Active Substance: LORAZEPAM
     Dosage: UNK
  6. OXYBUTYNIN [Concomitant]
     Active Substance: OXYBUTYNIN\OXYBUTYNIN CHLORIDE
     Dosage: UNK
  7. PROLIA [Concomitant]
     Active Substance: DENOSUMAB
     Dosage: UNK
  8. GOSERELIN [Concomitant]
     Active Substance: GOSERELIN
     Dosage: UNK
  9. GABAPENTIN [Concomitant]
     Active Substance: GABAPENTIN
     Dosage: UNK
  10. XGEVA [Concomitant]
     Active Substance: DENOSUMAB
     Dosage: UNK
  11. VITAMINS [Concomitant]
     Active Substance: VITAMINS
     Dosage: UNK

REACTIONS (13)
  - Depression [Not Recovered/Not Resolved]
  - Pyrexia [Not Recovered/Not Resolved]
  - Alopecia [Not Recovered/Not Resolved]
  - Rash [Recovering/Resolving]
  - Depressed mood [Not Recovered/Not Resolved]
  - Feeling of despair [Not Recovered/Not Resolved]
  - Decreased interest [Not Recovered/Not Resolved]
  - Anhedonia [Not Recovered/Not Resolved]
  - Nervousness [Not Recovered/Not Resolved]
  - Anxiety [Not Recovered/Not Resolved]
  - Fatigue [Not Recovered/Not Resolved]
  - Hot flush [Unknown]
  - Blood potassium increased [Unknown]
